FAERS Safety Report 6186062-2 (Version None)
Quarter: 2009Q2

REPORT INFORMATION
  Report Type: 
  Country: None (occurrence: None)
  Receive Date: 20090507
  Receipt Date: 20090507
  Transmission Date: 20091009
  Serious: Yes (Other)
  Sender: FDA-Public Use
  Company Number: None

PATIENT
  Sex: Female
  Weight: 59.09 kg

DRUGS (19)
  1. ZOLPIDEM TARTRATE [Suspect]
     Dosage: 10MG TABLET HS ORAL
     Dates: start: 20090401, end: 20090506
  2. CENTRUM SILVER [Concomitant]
  3. DIGOXIN [Concomitant]
  4. ASPIRIN [Concomitant]
  5. ERGOCALCIFEROL [Concomitant]
  6. ERYTHROMYCIN [Concomitant]
  7. FISH OIL [Concomitant]
  8. FOLIC ACID [Concomitant]
  9. METHOTREXATE [Concomitant]
  10. METOPROLOL [Concomitant]
  11. NORVASC [Concomitant]
  12. OMEPRAZOLE [Concomitant]
  13. PREDNISONE [Concomitant]
  14. RESTASIS [Concomitant]
  15. SPIRONOLACTONE [Concomitant]
  16. SULFACETAMIDE SODIUM [Concomitant]
  17. SYNTHROID [Concomitant]
  18. TUMS [Concomitant]
  19. ZETIA [Concomitant]

REACTIONS (1)
  - DIZZINESS [None]
